FAERS Safety Report 7971971-1 (Version None)
Quarter: 2011Q4

REPORT INFORMATION
  Report Type: 
  Country: None (occurrence: None)
  Receive Date: 20111212
  Receipt Date: 20111201
  Transmission Date: 20120403
  Serious: Yes (Other)
  Sender: FDA-Public Use
  Company Number: CN-ASTRAZENECA-2011SE73049

PATIENT

DRUGS (2)
  1. GEFITINIB [Suspect]
     Indication: NON-SMALL CELL LUNG CANCER
     Route: 048
  2. STEREOTACTIC GAMMA RADIOTHERAPY [Concomitant]
     Indication: NON-SMALL CELL LUNG CANCER
     Dosage: SINGLE DOSE OF 4.0-6.5 GY AND TOTAL DOSING OF 36-48GY(ISODOSE CURVE 50%-80%), TOTAL FOR 8-12TIMES.

REACTIONS (1)
  - LEUKOPENIA [None]
